FAERS Safety Report 25479375 (Version 1)
Quarter: 2025Q2

REPORT INFORMATION
  Report Type: Spontaneous
  Country: US (occurrence: US)
  Receive Date: 20250625
  Receipt Date: 20250625
  Transmission Date: 20250716
  Serious: No
  Sender: PFIZER
  Company Number: US-PFIZER INC-2016538889

PATIENT
  Age: 82 Year
  Sex: Female

DRUGS (17)
  1. BOSULIF [Suspect]
     Active Substance: BOSUTINIB MONOHYDRATE
     Indication: Chronic myeloid leukaemia
     Dosage: 100 MG, 1X/DAY, TAKE WITH FOOD
     Route: 048
     Dates: start: 20161115
  2. BOSULIF [Suspect]
     Active Substance: BOSUTINIB MONOHYDRATE
     Dosage: 100 MG, 1X/DAY TAKE WITH FOOD
     Route: 048
     Dates: start: 20190916
  3. BOSULIF [Suspect]
     Active Substance: BOSUTINIB MONOHYDRATE
     Dosage: 100 MG, 1X/DAY TAKE WITH FOOD
     Route: 048
     Dates: start: 20200618
  4. BOSULIF [Suspect]
     Active Substance: BOSUTINIB MONOHYDRATE
     Dosage: 100 MG TOTAL ONE TIME A DAY TAKE WITH FOOD
     Route: 048
  5. BOSULIF [Suspect]
     Active Substance: BOSUTINIB MONOHYDRATE
     Dosage: TAKE 2 TABLETS, 200 MG TOTAL ONE TIME A DAY, TAKE WITH FOOD
     Route: 048
  6. BOSULIF [Suspect]
     Active Substance: BOSUTINIB MONOHYDRATE
     Dates: start: 2022
  7. BOSULIF [Suspect]
     Active Substance: BOSUTINIB MONOHYDRATE
     Dosage: 200 MG, ALTERNATE DAY
     Route: 048
  8. BOSULIF [Suspect]
     Active Substance: BOSUTINIB MONOHYDRATE
     Dosage: 100 MG, ALTERNATE DAY
     Route: 048
  9. BOSULIF [Suspect]
     Active Substance: BOSUTINIB MONOHYDRATE
     Dosage: 200 MG, ALTERNATE DAY TAKE 2 TABLETS
     Route: 048
     Dates: start: 20220822, end: 20221208
  10. BOSULIF [Suspect]
     Active Substance: BOSUTINIB MONOHYDRATE
     Dosage: 100 MG, ALTERNATE DAY TAKE WITH FOOD.
     Route: 048
     Dates: start: 20220822, end: 20221208
  11. BOSULIF [Suspect]
     Active Substance: BOSUTINIB MONOHYDRATE
     Dosage: 200 MG, ALTERNATE DAY
     Route: 048
  12. BOSULIF [Suspect]
     Active Substance: BOSUTINIB MONOHYDRATE
     Dosage: 200 MG ONE TIME A DAY ALTERNATING EVERY OTHER DAY WITH 100MG (1 TAB) DAILY; TAKE WITH FOOD
     Route: 048
     Dates: start: 20231023, end: 20240130
  13. BOSULIF [Suspect]
     Active Substance: BOSUTINIB MONOHYDRATE
     Dosage: 100 MG, ALTERNATING EVERY OTHER DAY WITH 100MG (1 TAB) DAILY; TAKE WITH FOOD
     Route: 048
     Dates: start: 20231023, end: 20240130
  14. BOSULIF [Suspect]
     Active Substance: BOSUTINIB MONOHYDRATE
     Dosage: TAKE 1 TABLET 100 MG ONE TIME A DAY TAKE WITH FOOD
     Route: 048
     Dates: start: 20241007
  15. BOSULIF [Suspect]
     Active Substance: BOSUTINIB MONOHYDRATE
     Dosage: TAKE 1 TABLET 100 MG ONE TIME A DAY TAKE WITH FOOD
     Route: 048
     Dates: start: 20250127, end: 20250425
  16. TESSALON [Concomitant]
     Active Substance: BENZONATATE
     Indication: Cough
     Route: 048
  17. NEURONTIN [Concomitant]
     Active Substance: GABAPENTIN
     Indication: Neuralgia
     Dosage: 100 MG, 1X/DAY (TAKE 1 CAPSULE BY MOUTH EVERY EVENING)
     Route: 048

REACTIONS (3)
  - Lung disorder [Unknown]
  - Off label use [Unknown]
  - Product use issue [Unknown]
